FAERS Safety Report 20320315 (Version 1)
Quarter: 2022Q1

REPORT INFORMATION
  Report Type: Other
  Country: JP (occurrence: JP)
  Receive Date: 20220111
  Receipt Date: 20220111
  Transmission Date: 20220423
  Serious: Yes (Other)
  Sender: FDA-Public Use
  Company Number: JP-GEHPL-2022JSU000058AA

PATIENT

DRUGS (2)
  1. OMNIPAQUE [Suspect]
     Active Substance: IOHEXOL
     Indication: Computerised tomogram
     Dosage: 99 ML, SINGLE
     Route: 042
     Dates: start: 20220104, end: 20220104
  2. OMNIPAQUE [Suspect]
     Active Substance: IOHEXOL
     Indication: Cholelithiasis

REACTIONS (2)
  - Sneezing [Unknown]
  - Pruritus [Unknown]

NARRATIVE: CASE EVENT DATE: 20220104
